FAERS Safety Report 8081646-9 (Version None)
Quarter: 2012Q1

REPORT INFORMATION
  Report Type: 
  Country: None (occurrence: None)
  Receive Date: 20120130
  Receipt Date: 20120125
  Transmission Date: 20120608
  Serious: Yes (Life-Threatening)
  Sender: FDA-Public Use
  Company Number: IN-ASTRAZENECA-2012SE05273

PATIENT
  Age: 6 Week
  Sex: Male
  Weight: 3.5 kg

DRUGS (11)
  1. OXYGEN [Concomitant]
     Indication: INDUCTION AND MAINTENANCE OF ANAESTHESIA
  2. FENTANYL [Concomitant]
     Indication: MAINTENANCE OF ANAESTHESIA
  3. LACTATED RINGER'S [Concomitant]
  4. BUPIVACAINE HCL [Suspect]
     Indication: ANALGESIC THERAPY
     Route: 008
  5. LIDOCAINE [Suspect]
     Indication: ANALGESIC THERAPY
     Route: 008
  6. ATRACURIUM [Concomitant]
     Indication: MAINTENANCE OF ANAESTHESIA
  7. CEFTRIAXONE [Concomitant]
  8. NITROUS OXIDE [Concomitant]
     Indication: INDUCTION AND MAINTENANCE OF ANAESTHESIA
  9. ACETAMINOPHEN [Concomitant]
     Route: 048
  10. HALOTHANE [Concomitant]
     Indication: INDUCTION AND MAINTENANCE OF ANAESTHESIA
  11. SODIUM CHLORIDE [Concomitant]

REACTIONS (2)
  - HYPOXIA [None]
  - TONIC CONVULSION [None]
